FAERS Safety Report 5163400-0 (Version None)
Quarter: 2006Q4

REPORT INFORMATION
  Report Type: 
  Country: None (occurrence: None)
  Receive Date: 20061204
  Receipt Date: 20060928
  Transmission Date: 20070319
  Serious: Yes (Death)
  Sender: FDA-Public Use
  Company Number: US-PURDUE-USA_2006_0025270

PATIENT
  Age: 19 Year
  Sex: Female
  Weight: 85 kg

DRUGS (8)
  1. OXYCONTIN [Suspect]
     Indication: PAIN
     Dosage: 20 MG, BID
     Dates: start: 20050101, end: 20060909
  2. SOMA [Suspect]
     Indication: PAIN
     Dosage: 1 TABLET, TID
     Dates: start: 20060501, end: 20060909
  3. EFFEXOR [Concomitant]
     Dosage: UNK, UD
  4. LUNESTA [Concomitant]
     Dosage: UNK, UD
  5. LYRICA [Concomitant]
     Dosage: UNK, UD
  6. PROMETHAZINE [Concomitant]
     Dosage: UNK, UD
  7. NABUMETONE [Concomitant]
     Dosage: UNK, UD
  8. MEPROBAMATE [Suspect]
     Indication: PAIN
     Dosage: UNK, UD

REACTIONS (6)
  - ACCIDENTAL OVERDOSE [None]
  - DEPRESSION [None]
  - DRUG TOLERANCE [None]
  - EXERCISE LACK OF [None]
  - SNORING [None]
  - UNRESPONSIVE TO STIMULI [None]
